FAERS Safety Report 11849506 (Version 1)
Quarter: 2015Q4

REPORT INFORMATION
  Report Type: Spontaneous
  Country: US (occurrence: None)
  Receive Date: 20151217
  Receipt Date: 20151217
  Transmission Date: 20160305
  Serious: Yes (Hospitalization)
  Sender: FDA-Public Use
  Company Number: None

PATIENT
  Age: 60 Year
  Sex: Female
  Weight: 109 kg

DRUGS (27)
  1. HARVONI [Suspect]
     Active Substance: LEDIPASVIR\SOFOSBUVIR
     Indication: HEPATITIS C
     Dosage: 90/MG/400MG QD PO
     Route: 048
     Dates: start: 20150723
  2. LACTULOSEM BUMENTANIDE [Concomitant]
  3. BUPROPIONM [Concomitant]
  4. KETOROLAC [Concomitant]
     Active Substance: KETOROLAC\KETOROLAC TROMETHAMINE
  5. METHYLPREDNISONE [Concomitant]
     Active Substance: METHYLPREDNISOLONE
  6. NADOLOL. [Concomitant]
     Active Substance: NADOLOL
  7. OXYCODONE [Concomitant]
     Active Substance: OXYCODONE
  8. ABLIFY [Concomitant]
  9. INDERAL [Concomitant]
     Active Substance: PROPRANOLOL HYDROCHLORIDE
  10. ALBUTEROL. [Concomitant]
     Active Substance: ALBUTEROL
  11. MORPHINE [Concomitant]
     Active Substance: MORPHINE
  12. SYNTHROID [Concomitant]
     Active Substance: LEVOTHYROXINE SODIUM
  13. VENLAFAXIN [Concomitant]
     Active Substance: VENLAFAXINE HYDROCHLORIDE
  14. LIDOCAINE. [Concomitant]
     Active Substance: LIDOCAINE
  15. CIPRO [Concomitant]
     Active Substance: CIPROFLOXACIN HYDROCHLORIDE
  16. IPRATROPIUM BROMIDE W/ ALBUTEROL SULFATE [Concomitant]
  17. PREDNISONE. [Concomitant]
     Active Substance: PREDNISONE
  18. NYSTATIN. [Concomitant]
     Active Substance: NYSTATIN
  19. POTASSIUM [Concomitant]
     Active Substance: POTASSIUM
  20. PROZAC [Concomitant]
     Active Substance: FLUOXETINE HYDROCHLORIDE
  21. MAXALT [Concomitant]
     Active Substance: RIZATRIPTAN BENZOATE
  22. SPIRIVA [Concomitant]
     Active Substance: TIOTROPIUM BROMIDE MONOHYDRATE
  23. NEXIUM [Concomitant]
     Active Substance: ESOMEPRAZOLE MAGNESIUM
  24. VITAMIN D [Concomitant]
     Active Substance: CHOLECALCIFEROL
  25. ASPIRIN. [Concomitant]
     Active Substance: ASPIRIN
  26. ROCEPHIN [Concomitant]
     Active Substance: CEFTRIAXONE SODIUM
  27. XIFAXAN [Concomitant]
     Active Substance: RIFAXIMIN

REACTIONS (7)
  - Lethargy [None]
  - Urinary tract infection [None]
  - Mental status changes [None]
  - Acute kidney injury [None]
  - Sluggishness [None]
  - Dehydration [None]
  - Somnolence [None]

NARRATIVE: CASE EVENT DATE: 20151015
